FAERS Safety Report 10252015 (Version 2)
Quarter: 2014Q2

REPORT INFORMATION
  Report Type: Spontaneous
  Country: JP (occurrence: JP)
  Receive Date: 20140623
  Receipt Date: 20140623
  Transmission Date: 20141212
  Serious: Yes (Hospitalization)
  Sender: FDA-Public Use
  Company Number: JP-JNJFOC-20140519088

PATIENT
  Age: 63 Year
  Sex: Female
  Weight: 39 kg

DRUGS (9)
  1. REMINYL [Suspect]
     Indication: DEMENTIA ALZHEIMER^S TYPE
     Route: 048
     Dates: start: 20140526, end: 20140526
  2. REMINYL [Suspect]
     Indication: DEMENTIA ALZHEIMER^S TYPE
     Route: 048
     Dates: start: 20140220, end: 20140320
  3. REMINYL [Suspect]
     Indication: DEMENTIA ALZHEIMER^S TYPE
     Dosage: IN EVENING
     Route: 048
     Dates: start: 20140320, end: 20140525
  4. SERMION [Concomitant]
     Indication: CEREBROVASCULAR DISORDER
     Dosage: EVENING
     Route: 048
     Dates: start: 20130526, end: 20140526
  5. SERMION [Concomitant]
     Indication: CEREBROVASCULAR DISORDER
     Dosage: NIGHT
     Route: 048
     Dates: start: 20130228, end: 20140525
  6. SERMION [Concomitant]
     Indication: CEREBROVASCULAR DISORDER
     Route: 048
     Dates: start: 20121108, end: 20130228
  7. MACROGOL [Concomitant]
     Route: 048
     Dates: start: 20140526, end: 20140527
  8. ATROPINE [Concomitant]
     Route: 030
     Dates: start: 20140526, end: 20140527
  9. ACTIVATED CARBON [Concomitant]
     Route: 048
     Dates: start: 20140526, end: 20140527

REACTIONS (6)
  - Overdose [Not Recovered/Not Resolved]
  - Incontinence [Recovered/Resolved]
  - Hyperhidrosis [Recovered/Resolved]
  - Miosis [Recovered/Resolved]
  - Altered state of consciousness [Recovered/Resolved]
  - Salivary hypersecretion [Recovered/Resolved]
